FAERS Safety Report 16826689 (Version 1)
Quarter: 2019Q3

REPORT INFORMATION
  Report Type: Spontaneous
  Country: JP (occurrence: JP)
  Receive Date: 20190919
  Receipt Date: 20190919
  Transmission Date: 20191005
  Serious: Yes (Life-Threatening, Hospitalization, Other)
  Sender: FDA-Public Use
  Company Number: JP-MACLEODS PHARMACEUTICALS US LTD-MAC2019022977

PATIENT

DRUGS (5)
  1. METFORMIN [Suspect]
     Active Substance: METFORMIN HYDROCHLORIDE
     Indication: DIABETES MELLITUS
     Dosage: UNK, 200 TABLETS WERE MISSING
     Route: 048
  2. GLIMEPIRIDE. [Suspect]
     Active Substance: GLIMEPIRIDE
     Indication: DIABETES MELLITUS
     Dosage: UNK, 78 TABLETS WERE MISSING
     Route: 048
  3. CANDESARTAN. [Suspect]
     Active Substance: CANDESARTAN
     Indication: PRODUCT USED FOR UNKNOWN INDICATION
     Dosage: UNK, 29 TABLETS WERE MISSING
     Route: 048
  4. ALOGLIPTIN. [Suspect]
     Active Substance: ALOGLIPTIN
     Indication: DIABETES MELLITUS
     Dosage: UNK, 2 TABLETS WERE MISSING
     Route: 048
  5. AMLODIPINE BESYLATE. [Suspect]
     Active Substance: AMLODIPINE BESYLATE
     Indication: PRODUCT USED FOR UNKNOWN INDICATION
     Dosage: UNK, 84 TABLETS WERE MISSING
     Route: 048

REACTIONS (10)
  - Body temperature decreased [Recovered/Resolved]
  - Vomiting [Recovered/Resolved]
  - Lactic acidosis [Recovered/Resolved]
  - Hypokalaemia [Not Recovered/Not Resolved]
  - Overdose [Not Recovered/Not Resolved]
  - Drug level increased [Recovered/Resolved]
  - Renal impairment [Recovered/Resolved]
  - Hypoglycaemia [Not Recovered/Not Resolved]
  - Toxicity to various agents [Not Recovered/Not Resolved]
  - Hypotension [Recovered/Resolved]
